FAERS Safety Report 5756022-1 (Version None)
Quarter: 2008Q2

REPORT INFORMATION
  Report Type: 
  Country: None (occurrence: None)
  Receive Date: 20080602
  Receipt Date: 20080521
  Transmission Date: 20081010
  Serious: Yes (Hospitalization, Other)
  Sender: FDA-Public Use
  Company Number: PHHY2008BR09306

PATIENT
  Sex: Female
  Weight: 11 kg

DRUGS (1)
  1. TEGRETOL [Suspect]
     Dosage: 8ML 2% 100ML

REACTIONS (4)
  - ACCIDENTAL EXPOSURE [None]
  - AGITATION [None]
  - GASTRIC LAVAGE [None]
  - SOMNOLENCE [None]
